FAERS Safety Report 7777964-1 (Version None)
Quarter: 2011Q3

REPORT INFORMATION
  Report Type: 
  Country: None (occurrence: None)
  Receive Date: 20110926
  Receipt Date: 20110915
  Transmission Date: 20111222
  Serious: Yes (Other)
  Sender: FDA-Public Use
  Company Number: US-BIOGENIDEC-2010BI041682

PATIENT
  Age: 39 Year
  Sex: Female

DRUGS (3)
  1. AVONEX [Suspect]
     Route: 030
     Dates: start: 20101201
  2. AVONEX [Suspect]
     Indication: MULTIPLE SCLEROSIS
     Route: 030
     Dates: start: 20021207, end: 20090306
  3. AVONEX [Suspect]
     Route: 030
     Dates: start: 20091211, end: 20101119

REACTIONS (2)
  - ABORTION SPONTANEOUS [None]
  - NASOPHARYNGITIS [None]
